FAERS Safety Report 5893810-5 (Version None)
Quarter: 2008Q3

REPORT INFORMATION
  Report Type: 
  Country: None (occurrence: None)
  Receive Date: 20080923
  Receipt Date: 20071019
  Transmission Date: 20090109
  Serious: No
  Sender: FDA-Public Use
  Company Number: US-ASTRAZENECA-2007UW24523

PATIENT
  Age: 20 Year
  Sex: Male

DRUGS (3)
  1. SEROQUEL [Suspect]
     Indication: BIPOLAR DISORDER
     Dosage: 100 MG QAM; 400 MG QPM
     Route: 048
     Dates: start: 20070913
  2. VALPROIC ACID [Concomitant]
     Dosage: 500 MG QAM; 1000 MG QPM
  3. PAROXETINE HCL [Concomitant]

REACTIONS (2)
  - GALACTORRHOEA [None]
  - GYNAECOMASTIA [None]
